FAERS Safety Report 19258383 (Version 1)
Quarter: 2021Q2

REPORT INFORMATION
  Report Type: Spontaneous
  Country: CA (occurrence: CA)
  Receive Date: 20210514
  Receipt Date: 20210514
  Transmission Date: 20210717
  Serious: Yes (Other)
  Sender: FDA-Public Use
  Company Number: CA-ACCORD-224824

PATIENT
  Age: 70 Year
  Sex: Female

DRUGS (2)
  1. CLODRONIC ACID [Concomitant]
     Active Substance: CLODRONIC ACID
     Route: 065
  2. ANASTROZOLE. [Suspect]
     Active Substance: ANASTROZOLE
     Indication: BREAST CANCER METASTATIC
     Dosage: 1 EVERY 1 DAYS
     Route: 048

REACTIONS (1)
  - Malignant neoplasm progression [Unknown]
